FAERS Safety Report 4903426-2 (Version None)
Quarter: 2006Q1

REPORT INFORMATION
  Report Type: 
  Country: None (occurrence: None)
  Receive Date: 20060203
  Receipt Date: 20060123
  Transmission Date: 20060701
  Serious: Yes (Death, Hospitalization)
  Sender: FDA-Public Use
  Company Number: 2006005545

PATIENT
  Age: 83 Year
  Sex: Male
  Weight: 32.2 kg

DRUGS (6)
  1. VFEND [Suspect]
     Indication: BRONCHOPULMONARY ASPERGILLOSIS
     Dosage: 180 MG (3 MG/KG, 2 IN 1 D), INTRAVENOUS
     Route: 042
     Dates: start: 20051220
  2. FAMOTIDINE [Suspect]
     Indication: GASTRIC ULCER
     Dosage: 40 MG (2 IN 1 D), ORAL
     Route: 048
  3. PURSENNID (SENNA LEAF) [Suspect]
     Indication: CONSTIPATION
     Dosage: 24 MG (24 MG, 1 IN 1 D), ORAL
     Route: 048
  4. ASPARA K (ASPARTATE POTASSIUM) [Suspect]
     Indication: HYPOKALAEMIA
     Dosage: 900 MG (3 IN 1 D), ORAL
     Route: 048
     Dates: start: 20051216
  5. SYMMETREL [Suspect]
     Indication: DYSPHAGIA
     Dosage: 100 MG (2 IN 1 D), ORAL
     Route: 048
     Dates: start: 20051231
  6. LAXOBERON (SODIUM PICOSULFATE) [Suspect]
     Indication: CONSTIPATION
     Dosage: 10 DROP (10 DROP,1 IN 1 D), ORAL
     Route: 048

REACTIONS (16)
  - ABASIA [None]
  - ANOREXIA [None]
  - APHONIA [None]
  - ATYPICAL MYCOBACTERIAL INFECTION [None]
  - BLOOD GLUCOSE DECREASED [None]
  - BRONCHOPULMONARY ASPERGILLOSIS [None]
  - CARDIAC ARREST [None]
  - CEREBROVASCULAR DISORDER [None]
  - DEPRESSED LEVEL OF CONSCIOUSNESS [None]
  - DRUG INEFFECTIVE [None]
  - DYSPHAGIA [None]
  - HYPOKALAEMIA [None]
  - PO2 DECREASED [None]
  - PULSE ABSENT [None]
  - RESPIRATORY ARREST [None]
  - WEIGHT DECREASED [None]
